FAERS Safety Report 6377611-X (Version None)
Quarter: 2009Q3

REPORT INFORMATION
  Report Type: 
  Country: None (occurrence: None)
  Receive Date: 20090925
  Receipt Date: 20090923
  Transmission Date: 20100115
  Serious: Yes (Hospitalization)
  Sender: FDA-Public Use
  Company Number: FR-BRISTOL-MYERS SQUIBB COMPANY-14791180

PATIENT
  Age: 70 Year
  Sex: Female

DRUGS (14)
  1. CORGARD [Suspect]
     Route: 048
     Dates: start: 20090717, end: 20090902
  2. GLUCOPHAGE [Suspect]
     Route: 048
     Dates: end: 20090830
  3. ALDACTAZINE [Suspect]
     Route: 048
     Dates: end: 20090830
  4. TERCIAN [Suspect]
     Dates: end: 20090830
  5. ZOLPIDEM [Suspect]
     Route: 048
     Dates: end: 20090830
  6. PAROXETINE HCL [Suspect]
     Route: 048
     Dates: end: 20090830
  7. ALPRAZOLAM [Suspect]
     Route: 048
     Dates: end: 20090830
  8. NOVONORM [Suspect]
     Route: 048
     Dates: end: 20090830
  9. INSULIN [Suspect]
     Dates: end: 20090830
  10. TAHOR [Suspect]
     Route: 048
  11. GABAPENTIN [Suspect]
     Route: 048
     Dates: start: 20090817, end: 20090830
  12. AMLODIPINE [Suspect]
     Route: 048
     Dates: start: 20090301
  13. TRANSIPEG [Concomitant]
     Route: 048
  14. EFFERALGAN [Concomitant]

REACTIONS (7)
  - ACIDOSIS [None]
  - HYPERGLYCAEMIA [None]
  - HYPERKALAEMIA [None]
  - MALAISE [None]
  - RENAL FAILURE ACUTE [None]
  - SINUS BRADYCARDIA [None]
  - VOMITING [None]
